FAERS Safety Report 11225242 (Version 1)
Quarter: 2015Q2

REPORT INFORMATION
  Report Type: Spontaneous
  Country: US (occurrence: None)
  Receive Date: 20150626
  Receipt Date: 20150626
  Transmission Date: 20150821
  Serious: Yes (Hospitalization)
  Sender: FDA-Public Use
  Company Number: None

PATIENT
  Age: 68 Year
  Sex: Male
  Weight: 130.64 kg

DRUGS (8)
  1. LASSIX [Concomitant]
  2. OMEGA 3 [Concomitant]
     Active Substance: OMEGA-3 FATTY ACIDS
  3. SIMVASTATIN. [Concomitant]
     Active Substance: SIMVASTATIN
  4. COREG [Concomitant]
     Active Substance: CARVEDILOL
  5. XARELTO [Suspect]
     Active Substance: RIVAROXABAN
     Indication: ATRIAL FIBRILLATION
     Route: 048
     Dates: start: 201411, end: 20150413
  6. CENTRUM 1 DAY VITAMIN [Concomitant]
  7. COQ10 [Concomitant]
     Active Substance: UBIDECARENONE
  8. LOSARTIN [Concomitant]
     Active Substance: LOSARTAN

REACTIONS (3)
  - Septic shock [None]
  - Rectal haemorrhage [None]
  - Thrombosis [None]

NARRATIVE: CASE EVENT DATE: 20150412
